FAERS Safety Report 8357494-9 (Version None)
Quarter: 2012Q2

REPORT INFORMATION
  Report Type: 
  Country: None (occurrence: None)
  Receive Date: 20120511
  Receipt Date: 20120502
  Transmission Date: 20120825
  Serious: Yes (Other)
  Sender: FDA-Public Use
  Company Number: AUR-APL-2012-01737

PATIENT
  Age: 49 Year
  Sex: Female
  Weight: 71 kg

DRUGS (9)
  1. PABRINEX (PARENTROVITE /00041801/) [Concomitant]
  2. FLUOXETINE [Suspect]
     Indication: PRODUCT USED FOR UNKNOWN INDICATION
     Dates: start: 20120117
  3. FOLIC ACID [Concomitant]
  4. ACETAMINOPHEN [Concomitant]
  5. THIAMINE HCL [Concomitant]
  6. MULTIVITAMIN (VIGRAN) [Concomitant]
  7. TRAMADOL HCL [Suspect]
     Indication: PAIN
     Dosage: (50 MG) ; (100 MG),ORAL
     Route: 048
     Dates: start: 20111203
  8. TRAMADOL HCL [Suspect]
     Indication: PAIN
     Dosage: (50 MG) ; (100 MG),ORAL
     Route: 048
     Dates: start: 20120112, end: 20120117
  9. TRAMADOL HCL [Suspect]
     Indication: PAIN
     Dosage: (50 MG) ; (100 MG),ORAL
     Route: 048
     Dates: start: 20120118

REACTIONS (2)
  - CONVULSION [None]
  - HYPOGLYCAEMIA [None]
